FAERS Safety Report 23751704 (Version 1)
Quarter: 2024Q2

REPORT INFORMATION
  Report Type: Spontaneous
  Country: CA (occurrence: CA)
  Receive Date: 20240417
  Receipt Date: 20240417
  Transmission Date: 20240716
  Serious: Yes (Hospitalization)
  Sender: FDA-Public Use
  Company Number: CA-009507513-2404CAN007373

PATIENT
  Age: 72 Year
  Sex: Male

DRUGS (11)
  1. KEYTRUDA [Suspect]
     Active Substance: PEMBROLIZUMAB
  2. CALCITRIOL [Concomitant]
     Active Substance: CALCITRIOL
  3. CALCIUM [Concomitant]
     Active Substance: CALCIUM
  4. FOLIC ACID [Concomitant]
     Active Substance: FOLIC ACID
  5. HYDROMORPHONE [Concomitant]
     Active Substance: HYDROMORPHONE
     Route: 048
  6. LORAZEPAM [Concomitant]
     Active Substance: LORAZEPAM
  7. MYCOPHENOLATE MOFETIL [Concomitant]
     Active Substance: MYCOPHENOLATE MOFETIL
  8. PANTOPRAZOLE [Concomitant]
     Active Substance: PANTOPRAZOLE
  9. PREDNISONE [Concomitant]
     Active Substance: PREDNISONE
  10. VITAMIN D NOS [Concomitant]
     Active Substance: VITAMIN D NOS
  11. ZINC [Concomitant]
     Active Substance: PYRITHIONE ZINC\ZINC\ZINC CHLORIDE
     Route: 048

REACTIONS (1)
  - Blood creatinine increased [Recovered/Resolved with Sequelae]
